FAERS Safety Report 4536471-X (Version None)
Quarter: 2004Q4

REPORT INFORMATION
  Report Type: 
  Country: None (occurrence: None)
  Receive Date: 20041220
  Receipt Date: 20041207
  Transmission Date: 20050328
  Serious: No
  Sender: FDA-Public Use
  Company Number: HQWYE558019NOV04

PATIENT
  Sex: Female

DRUGS (1)
  1. ADVIL [Suspect]
     Indication: PAIN IN EXTREMITY
     Dosage: 1-2 CAPSULES EVERY 4-6 HOURS, ORAL
     Route: 048
     Dates: start: 20020218

REACTIONS (7)
  - NAUSEA [None]
  - OEDEMA PERIPHERAL [None]
  - PAIN [None]
  - PRURITUS [None]
  - SWELLING [None]
  - URTICARIA [None]
  - VOMITING [None]
